FAERS Safety Report 13416288 (Version 1)
Quarter: 2017Q2

REPORT INFORMATION
  Report Type: Spontaneous
  Country: US (occurrence: US)
  Receive Date: 20170407
  Receipt Date: 20170407
  Transmission Date: 20170830
  Serious: No
  Sender: FDA-Public Use
  Company Number: US-BAYER-2017-067478

PATIENT
  Sex: Female

DRUGS (1)
  1. MIRENA [Suspect]
     Active Substance: LEVONORGESTREL
     Dosage: 20 MCG/24HR, CONT
     Route: 015
     Dates: end: 20170404

REACTIONS (6)
  - Tinnitus [None]
  - Pain in extremity [None]
  - Headache [None]
  - Device use issue [None]
  - Alopecia [None]
  - Dysmenorrhoea [None]
